FAERS Safety Report 20606517 (Version 1)
Quarter: 2022Q1

REPORT INFORMATION
  Report Type: Spontaneous
  Country: US (occurrence: US)
  Receive Date: 20220317
  Receipt Date: 20220317
  Transmission Date: 20220423
  Serious: No
  Sender: FDA-Public Use
  Company Number: US-BAUSCH-BL-2022-006633

PATIENT
  Sex: Female

DRUGS (1)
  1. RETIN-A [Suspect]
     Active Substance: TRETINOIN
     Indication: Skin wrinkling
     Dosage: USED THIS PRODUCT FOR 15 YEARS
     Route: 061

REACTIONS (1)
  - Dry skin [Unknown]
